FAERS Safety Report 7518671-X (Version None)
Quarter: 2011Q2

REPORT INFORMATION
  Report Type: 
  Country: None (occurrence: None)
  Receive Date: 20110602
  Receipt Date: 20110518
  Transmission Date: 20111010
  Serious: Yes (Other)
  Sender: FDA-Public Use
  Company Number: PHHY2011CA29889

PATIENT
  Sex: Female

DRUGS (6)
  1. CLOZARIL [Suspect]
     Indication: MENTAL RETARDATION
     Dosage: 175 MG,
     Route: 048
     Dates: start: 20100503
  2. CLOZARIL [Suspect]
     Dosage: 175 MG, UNK
     Dates: start: 20100101
  3. LOXAPINE HCL [Concomitant]
  4. TEGRETOL [Concomitant]
     Dosage: UNK
     Dates: end: 20110308
  5. CLOZARIL [Suspect]
     Dates: start: 20100504
  6. KEMADRIN [Concomitant]
     Dosage: UNK
     Dates: end: 20110407

REACTIONS (2)
  - FAECALOMA [None]
  - CONSTIPATION [None]
